FAERS Safety Report 7163731-9 (Version None)
Quarter: 2010Q4

REPORT INFORMATION
  Report Type: 
  Country: None (occurrence: None)
  Receive Date: 20101215
  Receipt Date: 20100605
  Transmission Date: 20110411
  Serious: Yes (Other)
  Sender: FDA-Public Use
  Company Number: US-PFIZER INC-2010070730

PATIENT
  Sex: Male
  Weight: 68 kg

DRUGS (2)
  1. LYRICA [Suspect]
     Indication: PAIN MANAGEMENT
     Dosage: 25 MG, 3X/DAY
     Route: 048
     Dates: start: 20100528
  2. GEODON [Concomitant]
     Indication: BIPOLAR DISORDER
     Dosage: 60 MG, 1X/DAY
     Route: 048

REACTIONS (2)
  - CHONDROPLASTY [None]
  - OEDEMA PERIPHERAL [None]
